FAERS Safety Report 21687710 (Version 1)
Quarter: 2022Q4

REPORT INFORMATION
  Report Type: Spontaneous
  Country: CN (occurrence: CN)
  Receive Date: 20221206
  Receipt Date: 20221206
  Transmission Date: 20230112
  Serious: Yes (Hospitalization)
  Sender: FDA-Public Use
  Company Number: CN-ELI_LILLY_AND_COMPANY-CN202211013933

PATIENT
  Age: 82 Year
  Sex: Male
  Weight: 70 kg

DRUGS (3)
  1. INSULIN LISPRO [Suspect]
     Active Substance: INSULIN LISPRO
     Indication: Diabetes mellitus
     Dosage: 18 INTERNATIONAL UNIT, EACH MORNING
     Route: 058
     Dates: start: 20220101, end: 20221123
  2. INSULIN LISPRO [Suspect]
     Active Substance: INSULIN LISPRO
     Dosage: 12 INTERNATIONAL UNIT, EACH EVENING
     Route: 058
     Dates: start: 20220101, end: 20221123
  3. FELODIPINE [Concomitant]
     Active Substance: FELODIPINE
     Indication: Hypertension
     Dosage: 10 MG, DAILY
     Route: 048
     Dates: start: 20220101, end: 20221123

REACTIONS (3)
  - Cerebral infarction [Unknown]
  - Hypertension [Unknown]
  - Hypoglycaemia [Recovering/Resolving]

NARRATIVE: CASE EVENT DATE: 20221118
